FAERS Safety Report 4882511-8 (Version None)
Quarter: 2006Q1

REPORT INFORMATION
  Report Type: 
  Country: None (occurrence: None)
  Receive Date: 20060113
  Receipt Date: 20060104
  Transmission Date: 20060701
  Serious: Yes (Hospitalization, Other)
  Sender: FDA-Public Use
  Company Number: 2006003316

PATIENT
  Age: 30 Year
  Sex: Female
  Weight: 97.0698 kg

DRUGS (5)
  1. NEURONTIN [Suspect]
     Indication: SENSORY DISTURBANCE
     Dosage: 300 MG (300 MG, 1 IN 1 D),
     Dates: start: 20040301
  2. SUDAFED 12 HOUR [Suspect]
     Indication: ILL-DEFINED DISORDER
  3. AVONEX [Suspect]
     Indication: MULTIPLE SCLEROSIS
  4. GABAPENTIN [Suspect]
     Indication: SENSORY DISTURBANCE
     Dosage: 300 MG (300 MG, 1 IN 1 D),
     Dates: start: 20050101
  5. VICODIN [Concomitant]

REACTIONS (6)
  - CEREBROVASCULAR DISORDER [None]
  - COMA [None]
  - DRUG EXPOSURE DURING PREGNANCY [None]
  - DRUG INTERACTION [None]
  - HAEMORRHAGIC STROKE [None]
  - PREGNANCY [None]
